FAERS Safety Report 17395370 (Version 5)
Quarter: 2020Q2

REPORT INFORMATION
  Report Type: Spontaneous
  Country: IE (occurrence: IT)
  Receive Date: 20200210
  Receipt Date: 20200407
  Transmission Date: 20200713
  Serious: Yes (Hospitalization, Other)
  Sender: FDA-Public Use
  Company Number: IT-GLAXOSMITHKLINE-IT2020019267

PATIENT
  Sex: Female

DRUGS (2)
  1. CARDICOR [Concomitant]
     Active Substance: BISOPROLOL
     Indication: PRODUCT USED FOR UNKNOWN INDICATION
     Dosage: UNK
  2. ZEJULA [Suspect]
     Active Substance: NIRAPARIB
     Indication: OVARIAN CANCER
     Dosage: UNK

REACTIONS (8)
  - Stomatitis [Unknown]
  - Blood count abnormal [Unknown]
  - Haemoglobin abnormal [Unknown]
  - Tachycardia [Recovering/Resolving]
  - Deafness [Unknown]
  - Stress cardiomyopathy [Recovering/Resolving]
  - Myocardial infarction [Unknown]
  - Frustration tolerance decreased [Recovering/Resolving]
